FAERS Safety Report 14873531 (Version 1)
Quarter: 2018Q2

REPORT INFORMATION
  Report Type: Spontaneous
  Country: FR (occurrence: FR)
  Receive Date: 20180510
  Receipt Date: 20180510
  Transmission Date: 20180711
  Serious: Yes (Other)
  Sender: FDA-Public Use
  Company Number: FR-TEVA-2018-FR-891409

PATIENT

DRUGS (2)
  1. IBUPROFENE [Concomitant]
     Active Substance: IBUPROFEN
  2. COPAXONE [Suspect]
     Active Substance: GLATIRAMER ACETATE
     Dosage: COPAXONE: 40 MG/ML
     Route: 058
     Dates: start: 20180413

REACTIONS (3)
  - Multiple sclerosis relapse [Unknown]
  - Paraesthesia [Unknown]
  - Muscular weakness [Unknown]

NARRATIVE: CASE EVENT DATE: 2018
